FAERS Safety Report 8797755 (Version 2)
Quarter: 2012Q4

REPORT INFORMATION
  Report Type: Report from Study
  Country: US (occurrence: US)
  Receive Date: 20120919
  Receipt Date: 20120920
  Transmission Date: 20130627
  Serious: Yes (Hospitalization)
  Sender: FDA-Public Use
  Company Number: US-ROCHE-1126306

PATIENT
  Age: 52 Year
  Sex: Female
  Weight: 92.7 kg

DRUGS (8)
  1. PEGASYS [Suspect]
     Indication: HEPATITIS C
     Dosage: Regimen 1
     Route: 058
     Dates: start: 20120713
  2. COPEGUS [Suspect]
     Indication: HEPATITIS C
     Route: 048
     Dates: start: 20120713
  3. GS-7977 [Suspect]
     Indication: HEPATITIS C
     Route: 048
     Dates: start: 20120713
  4. ASTEPRO [Concomitant]
  5. VITAMIN D [Concomitant]
  6. OMEPRAZOLE [Concomitant]
     Route: 065
     Dates: start: 20120814
  7. BENADRYL [Concomitant]
     Route: 065
     Dates: start: 200006
  8. IBUPROFEN [Concomitant]
     Route: 065
     Dates: start: 1995

REACTIONS (3)
  - Leukopenia [Not Recovered/Not Resolved]
  - Pyrexia [Not Recovered/Not Resolved]
  - Chest pain [Not Recovered/Not Resolved]
